FAERS Safety Report 12761639 (Version 1)
Quarter: 2016Q3

REPORT INFORMATION
  Report Type: Report from Study
  Country: NL (occurrence: NL)
  Receive Date: 20160920
  Receipt Date: 20160920
  Transmission Date: 20161109
  Serious: Yes (Death, Other)
  Sender: FDA-Public Use
  Company Number: NL-BAUSCH-BL-2016-022302

PATIENT
  Sex: Male

DRUGS (1)
  1. NIFEDIPINE. [Suspect]
     Active Substance: NIFEDIPINE
     Indication: TOCOLYSIS
     Route: 048

REACTIONS (5)
  - Low birth weight baby [Unknown]
  - Foetal exposure during pregnancy [Unknown]
  - Necrotising colitis [Fatal]
  - Septic shock [Fatal]
  - Premature baby [Unknown]
